FAERS Safety Report 16747586 (Version 1)
Quarter: 2019Q3

REPORT INFORMATION
  Report Type: Spontaneous
  Country: DE (occurrence: DE)
  Receive Date: 20190827
  Receipt Date: 20190827
  Transmission Date: 20191005
  Serious: Yes (Hospitalization, Other)
  Sender: FDA-Public Use
  Company Number: DE-TEVA-2019-DE-1096938

PATIENT
  Age: 80 Year
  Sex: Female

DRUGS (18)
  1. IBUPROFEN. [Suspect]
     Active Substance: IBUPROFEN
     Dosage: 400 MG, 1-0-0-0
  2. RAMIPRIL. [Concomitant]
     Active Substance: RAMIPRIL
     Dosage: 2.5 MG, 1-0-1-0
  3. SERTRALIN [Suspect]
     Active Substance: SERTRALINE HYDROCHLORIDE
     Dosage: 50 MG, 1-0-0-0
  4. COLECALCIFEROL [Concomitant]
     Active Substance: CHOLECALCIFEROL
     Dosage: 1000 IE, 1-0-0-0
  5. ROTIGOTIN [Concomitant]
     Active Substance: ROTIGOTINE
     Dosage: 2 MG / TAG, 1-0-0-0 NACH EINER WOCHE 2-0-0-0, PFLASTER TRANSDERMAL
     Route: 062
  6. ROPINIROL [Concomitant]
     Active Substance: ROPINIROLE
     Dosage: 8 MG, 1-0-0.5-0
  7. ROPINIROL [Concomitant]
     Active Substance: ROPINIROLE
     Dosage: 4 MG, 0-0-1-0
  8. LEVODOPA/BENSERAZID [Concomitant]
     Active Substance: BENSERAZIDE\LEVODOPA
     Dosage: NK MG, 1-0-0-0
  9. NATRIUMCHLORID [Concomitant]
     Active Substance: SODIUM CHLORIDE
     Dosage: 1000 MG, 1-1-1-0
  10. LEVODOPA/CARBIDOPA [Concomitant]
     Active Substance: CARBIDOPA\LEVODOPA
     Dosage: 200|50 MG, 0-0-0-1
  11. OPICAPON [Concomitant]
     Dosage: 50 MG, 0-0-0-1 ABGESETZT AM 15.03.2018
     Dates: end: 20180315
  12. LEVODOPA/BENSERAZID [Concomitant]
     Active Substance: BENSERAZIDE\LEVODOPA
     Dosage: 1-0-0-0
  13. MACROGOL [Concomitant]
     Active Substance: POLYETHYLENE GLYCOLS
     Dosage: NK MG, 1-0-0-0
  14. PANTOPRAZOL [Concomitant]
     Active Substance: PANTOPRAZOLE SODIUM
     Dosage: 40 MG, 1-0-0-0
  15. LEVODOPA/CARBIDOPA [Concomitant]
     Active Substance: CARBIDOPA\LEVODOPA
     Dosage: 100|25 MG, 1-1-1-1 ZU DEN UHRZEITEN 7:00, 11:00, 15:00, 19:00
  16. LEVOTHYROXINE SODIUM. [Concomitant]
     Active Substance: LEVOTHYROXINE SODIUM
     Dosage: 75 ?G, 1-0-0-0
  17. ROPINIROL [Concomitant]
     Active Substance: ROPINIROLE
     Dosage: 8 MG, 1-0-0-0
  18. LEVODOPA/BENSERAZID [Concomitant]
     Active Substance: BENSERAZIDE\LEVODOPA
     Dosage: 100|25 MG, 1-1-1-0

REACTIONS (3)
  - Product prescribing error [Unknown]
  - Haematochezia [Unknown]
  - Abdominal pain lower [Unknown]
